FAERS Safety Report 17790779 (Version 3)
Quarter: 2020Q2

REPORT INFORMATION
  Report Type: Report from Study
  Country: US (occurrence: US)
  Receive Date: 20200515
  Receipt Date: 20200616
  Transmission Date: 20200714
  Serious: Yes (Death, Hospitalization, Other)
  Sender: FDA-Public Use
  Company Number: NVSC2020US132528

PATIENT
  Sex: Male

DRUGS (1)
  1. ENTRESTO [Suspect]
     Active Substance: SACUBITRIL\VALSARTAN
     Indication: PRODUCT USED FOR UNKNOWN INDICATION
     Dosage: UNK
     Route: 065

REACTIONS (10)
  - Respiratory failure [Unknown]
  - Colitis ischaemic [Unknown]
  - Acute kidney injury [Unknown]
  - Death [Fatal]
  - Subdural haematoma [Unknown]
  - Hepatorenal syndrome [Unknown]
  - Encephalopathy [Unknown]
  - Thrombocytopenia [Unknown]
  - Cardiogenic shock [Unknown]
  - Hepatic cirrhosis [Unknown]
